FAERS Safety Report 8741684 (Version 7)
Quarter: 2012Q4

REPORT INFORMATION
  Report Type: 
  Country: US (occurrence: US)
  Receive Date: 20120824
  Receipt Date: 20121210
  Transmission Date: 20130627
  Serious: Yes (Hospitalization)
  Sender: FDA-Public Use
  Company Number: US-BIOGENIDEC-2012BI031374

PATIENT
  Age: 46 Year
  Sex: Female

DRUGS (1)
  1. AVONEX [Suspect]
     Indication: MULTIPLE SCLEROSIS
     Route: 030
     Dates: start: 20120711, end: 20120825

REACTIONS (6)
  - Hypersensitivity [Recovered/Resolved]
  - Influenza like illness [Recovered/Resolved]
  - Eye pain [Not Recovered/Not Resolved]
  - Impaired gastric emptying [Not Recovered/Not Resolved]
  - Chest discomfort [Recovered/Resolved]
  - Multiple sclerosis relapse [Recovered/Resolved]
